FAERS Safety Report 16181796 (Version 1)
Quarter: 2019Q2

REPORT INFORMATION
  Report Type: Spontaneous
  Country: IN (occurrence: IN)
  Receive Date: 20190410
  Receipt Date: 20190410
  Transmission Date: 20190711
  Serious: Yes (Other)
  Sender: FDA-Public Use
  Company Number: IN-UNICHEM PHARMACEUTICALS (USA) INC-UCM201903-000120

PATIENT
  Age: 19 Year
  Sex: Male

DRUGS (9)
  1. QUETIAPINE. [Suspect]
     Active Substance: QUETIAPINE
     Indication: EXTRAPYRAMIDAL DISORDER
  2. OXCARBAZAPINE [Concomitant]
     Active Substance: OXCARBAZEPINE
     Indication: EXTRAPYRAMIDAL DISORDER
  3. HALOPERIDOL. [Concomitant]
     Active Substance: HALOPERIDOL
     Indication: EXTRAPYRAMIDAL DISORDER
  4. LITHIUM. [Concomitant]
     Active Substance: LITHIUM
  5. THYROXINE [Concomitant]
     Active Substance: LEVOTHYROXINE
  6. DIVALPROEX SODIUM. [Suspect]
     Active Substance: DIVALPROEX SODIUM
     Indication: EXTRAPYRAMIDAL DISORDER
  7. TRIHEXYPHENIDYL [Suspect]
     Active Substance: TRIHEXYPHENIDYL
     Indication: EXTRAPYRAMIDAL DISORDER
  8. ARIPIPRAZOLE. [Suspect]
     Active Substance: ARIPIPRAZOLE
     Indication: EXTRAPYRAMIDAL DISORDER
  9. OLANZAPINE. [Concomitant]
     Active Substance: OLANZAPINE

REACTIONS (3)
  - Therapy non-responder [Unknown]
  - Electrocardiogram QT prolonged [Unknown]
  - Therapeutic response decreased [Unknown]
